FAERS Safety Report 12258549 (Version 1)
Quarter: 2016Q2

REPORT INFORMATION
  Report Type: Spontaneous
  Country: US (occurrence: US)
  Receive Date: 20160412
  Receipt Date: 20160412
  Transmission Date: 20160815
  Serious: No
  Sender: FDA-Public Use
  Company Number: US-SA-2015SA050701

PATIENT
  Age: 62 Year
  Sex: Female

DRUGS (2)
  1. ALLEGRA [Suspect]
     Active Substance: FEXOFENADINE HYDROCHLORIDE
     Indication: ANGIOEDEMA
     Dosage: PRODUCT START DATE - 2.5 YEARS AGO
     Route: 048
     Dates: end: 20150415
  2. ALLEGRA [Suspect]
     Active Substance: FEXOFENADINE HYDROCHLORIDE
     Indication: URTICARIA
     Dosage: PRODUCT START DATE - 2.5 YEARS AGO
     Route: 048
     Dates: end: 20150415

REACTIONS (4)
  - Abdominal discomfort [Unknown]
  - Sinus disorder [Unknown]
  - Urticaria [Unknown]
  - Swelling [Unknown]
